FAERS Safety Report 26155254 (Version 2)
Quarter: 2025Q4

REPORT INFORMATION
  Report Type: Spontaneous
  Country: EU (occurrence: EU)
  Receive Date: 20251215
  Receipt Date: 20251222
  Transmission Date: 20260117
  Serious: Yes (Other)
  Sender: SANDOZ
  Company Number: EU-SANDOZ-SDZ2024SE108516

PATIENT

DRUGS (2)
  1. OMNITROPE [Suspect]
     Active Substance: SOMATROPIN
     Indication: Product used for unknown indication
     Dosage: UNK
  2. OMNITROPE [Suspect]
     Active Substance: SOMATROPIN

REACTIONS (3)
  - Surgery [Unknown]
  - Device use issue [Unknown]
  - Drug dose omission by device [Unknown]
